FAERS Safety Report 8736250 (Version 2)
Quarter: 2012Q4

REPORT INFORMATION
  Report Type: Report from Study
  Country: CA (occurrence: CA)
  Receive Date: 20120822
  Receipt Date: 20120829
  Transmission Date: 20130627
  Serious: Yes (Other)
  Sender: FDA-Public Use
  Company Number: CA-ABBOTT-12P-028-0968338-00

PATIENT
  Age: 62 None
  Sex: Female
  Weight: 54.03 kg

DRUGS (10)
  1. HUMIRA 40 MG/0.8 ML PEN [Suspect]
     Indication: RHEUMATOID ARTHRITIS
     Route: 058
     Dates: start: 20040223, end: 201206
  2. HUMIRA 40 MG/0.8 ML PEN [Suspect]
     Route: 058
     Dates: start: 20120810
  3. MORPHINE [Suspect]
     Indication: PRODUCT USED FOR UNKNOWN INDICATION
  4. METHOTREXATE [Concomitant]
     Indication: RHEUMATOID ARTHRITIS
     Route: 048
     Dates: start: 2004
  5. CELEBREX [Concomitant]
     Indication: RHEUMATOID ARTHRITIS
     Route: 048
  6. FOLIC ACID [Concomitant]
     Indication: DRUG THERAPY
     Route: 048
     Dates: start: 2004
  7. VITAMIN B12 [Concomitant]
     Indication: VITAMIN B12 DEFICIENCY
     Route: 048
  8. CALCIUM CALTRATE [Concomitant]
     Indication: MINERAL SUPPLEMENTATION
     Route: 048
  9. CENTRUM ADVANTAGE [Concomitant]
     Indication: VITAMIN SUPPLEMENTATION
     Route: 048
  10. OXYCOCET [Concomitant]
     Indication: RHEUMATOID ARTHRITIS

REACTIONS (27)
  - Skin discolouration [Unknown]
  - Poor peripheral circulation [Unknown]
  - Laceration [Recovering/Resolving]
  - Musculoskeletal pain [Not Recovered/Not Resolved]
  - Arthralgia [Not Recovered/Not Resolved]
  - Pain in extremity [Not Recovered/Not Resolved]
  - Oedema peripheral [Not Recovered/Not Resolved]
  - Drug hypersensitivity [Unknown]
  - Vomiting [Recovered/Resolved]
  - Fall [Unknown]
  - Osteoporosis [Not Recovered/Not Resolved]
  - Sinusitis [Recovered/Resolved]
  - Cystitis [Recovered/Resolved]
  - Visual impairment [Not Recovered/Not Resolved]
  - Corneal disorder [Not Recovered/Not Resolved]
  - Cataract [Unknown]
  - Arthralgia [Not Recovered/Not Resolved]
  - Inflammation [Not Recovered/Not Resolved]
  - Feeling hot [Not Recovered/Not Resolved]
  - Joint range of motion decreased [Not Recovered/Not Resolved]
  - Pain [Not Recovered/Not Resolved]
  - Spinal compression fracture [Unknown]
  - Hypophagia [Unknown]
  - Weight decreased [Unknown]
  - Foot deformity [Unknown]
  - Post procedural infection [Unknown]
  - Rheumatoid arthritis [Unknown]
